FAERS Safety Report 5311540-5 (Version None)
Quarter: 2007Q2

REPORT INFORMATION
  Report Type: 
  Country: None (occurrence: None)
  Receive Date: 20070430
  Receipt Date: 20070417
  Transmission Date: 20071010
  Serious: Yes (Hospitalization)
  Sender: FDA-Public Use
  Company Number: FR-GLAXOSMITHKLINE-B0467778A

PATIENT
  Age: 7 Year
  Sex: Male

DRUGS (4)
  1. LANVIS [Suspect]
     Dosage: 60MG PER DAY
     Route: 048
     Dates: start: 20070208, end: 20070225
  2. ARACYTINE [Concomitant]
     Dosage: 30MG FOUR TIMES PER DAY
     Route: 058
     Dates: start: 20060208, end: 20070223
  3. ENDOXAN [Concomitant]
     Dosage: 1G TWICE PER DAY
     Route: 042
     Dates: start: 20070208, end: 20070222
  4. BACTRIM [Concomitant]
     Route: 048

REACTIONS (9)
  - BLOOD IRON INCREASED [None]
  - BLOOD LACTATE DEHYDROGENASE INCREASED [None]
  - HISTIOCYTOSIS HAEMATOPHAGIC [None]
  - INFLAMMATION [None]
  - PANCYTOPENIA [None]
  - PERITONEAL EFFUSION [None]
  - PETECHIAE [None]
  - PYREXIA [None]
  - RETINAL HAEMORRHAGE [None]
